FAERS Safety Report 7947276-1 (Version None)
Quarter: 2011Q4

REPORT INFORMATION
  Report Type: 
  Country: None (occurrence: None)
  Receive Date: 20111129
  Receipt Date: 20111114
  Transmission Date: 20120403
  Serious: Yes (Hospitalization, Other)
  Sender: FDA-Public Use
  Company Number: JP-AMGEN-JPNCT2011062202

PATIENT
  Age: 76 Year
  Sex: Female
  Weight: 49 kg

DRUGS (19)
  1. PREDNISOLONE [Suspect]
     Route: 048
     Dates: start: 20110805, end: 20110811
  2. PREDNISOLONE [Suspect]
     Route: 048
     Dates: start: 20110812, end: 20110831
  3. PREDNISOLONE [Suspect]
     Route: 048
     Dates: start: 20110901, end: 20110907
  4. FLUCONAZOLE [Suspect]
     Indication: PROPHYLAXIS
     Dosage: UNCERTAINTY
     Route: 048
  5. ROMIPLOSTIM - KHK [Suspect]
     Dosage: 5 MUG/KG, QD
     Route: 058
     Dates: start: 20110901, end: 20110901
  6. MICARDIS [Suspect]
     Indication: HYPERTENSION
     Dosage: UNCERTAINTY
     Route: 048
  7. ROMIPLOSTIM - KHK [Suspect]
     Dosage: 3 MUG/KG, QD
     Route: 058
     Dates: start: 20110818, end: 20110818
  8. ROMIPLOSTIM - KHK [Suspect]
     Dosage: 6 MUG/KG, QD
     Route: 058
     Dates: start: 20110908, end: 20110908
  9. PREDNISOLONE [Suspect]
     Route: 048
     Dates: start: 20110722, end: 20110804
  10. VALGANCICLOVIR [Suspect]
     Indication: CYTOMEGALOVIRUS INFECTION
     Dosage: UNCERTAINTY
     Route: 048
  11. ROMIPLOSTIM - KHK [Suspect]
     Indication: IDIOPATHIC THROMBOCYTOPENIC PURPURA
     Dosage: 1 MUG/KG, QD
     Route: 058
     Dates: start: 20110728, end: 20110728
  12. ROMIPLOSTIM - KHK [Suspect]
     Dosage: 1 MUG/KG, QD
     Route: 058
     Dates: start: 20110804, end: 20110804
  13. ROMIPLOSTIM - KHK [Suspect]
     Dosage: 2 MUG/KG, QD
     Route: 058
     Dates: start: 20110811, end: 20110811
  14. ROMIPLOSTIM - KHK [Suspect]
     Dosage: 4 MUG/KG, QD
     Route: 058
     Dates: start: 20110825, end: 20110825
  15. PREDNISOLONE [Suspect]
     Route: 048
     Dates: start: 20110908
  16. LANSOPRAZOLE [Suspect]
     Indication: PROPHYLAXIS
     Dosage: UNCERTAINTY
     Route: 048
  17. LEVOFLOXACIN [Suspect]
     Indication: PROPHYLAXIS
     Dosage: UNCERTAINTY
     Route: 048
  18. ROMIPLOSTIM - KHK [Suspect]
     Dosage: 6 MUG/KG, QD
     Route: 058
     Dates: start: 20110914, end: 20110914
  19. PREDNISOLONE [Suspect]
     Indication: IDIOPATHIC THROMBOCYTOPENIC PURPURA
     Route: 048
     Dates: start: 20110715, end: 20110721

REACTIONS (3)
  - ARTERIOSCLEROSIS OBLITERANS [None]
  - LEG AMPUTATION [None]
  - WHITE BLOOD CELL COUNT INCREASED [None]
